FAERS Safety Report 5128981-1 (Version None)
Quarter: 2006Q4

REPORT INFORMATION
  Report Type: 
  Country: None (occurrence: None)
  Receive Date: 20061016
  Receipt Date: 20061016
  Transmission Date: 20070319
  Serious: Yes (Life-Threatening)
  Sender: FDA-Public Use
  Company Number: None

PATIENT
  Sex: Female
  Weight: 105.2345 kg

DRUGS (1)
  1. RAPTIVA [Suspect]
     Indication: PSORIASIS
     Dosage: 125MG KIT Q WEEK SQ
     Route: 058
     Dates: start: 20040101, end: 20060501

REACTIONS (3)
  - ECONOMIC PROBLEM [None]
  - INFECTION [None]
  - NEOPLASM MALIGNANT [None]
